FAERS Safety Report 10143813 (Version 1)
Quarter: 2014Q2

REPORT INFORMATION
  Report Type: Spontaneous
  Country: FR (occurrence: FR)
  Receive Date: 20140430
  Receipt Date: 20140430
  Transmission Date: 20141212
  Serious: Yes (Other)
  Sender: FDA-Public Use
  Company Number: FR-GLAXOSMITHKLINE-B0988168A

PATIENT
  Age: 57 Year
  Sex: Female

DRUGS (13)
  1. ZOPHREN [Suspect]
     Indication: PREMEDICATION
     Dosage: 8MGML PER DAY
     Route: 042
     Dates: start: 20140312, end: 20140314
  2. IFOSFAMIDE [Suspect]
     Indication: LYMPHOMA
     Dosage: 8.4G PER DAY
     Route: 042
     Dates: start: 20140313, end: 20140314
  3. UROMITEXAN [Suspect]
     Indication: PRODUCT USED FOR UNKNOWN INDICATION
     Dosage: 1MGML PER DAY
     Route: 042
     Dates: start: 20140313, end: 20140314
  4. CARBOPLATINE [Suspect]
     Indication: LYMPHOMA
     Dosage: 780MG PER DAY
     Route: 042
     Dates: start: 20140313
  5. ETOPOSIDE [Suspect]
     Indication: LYMPHOMA
     Dosage: 168MG PER DAY
     Route: 042
     Dates: start: 20140312, end: 20140314
  6. ZELITREX [Concomitant]
     Indication: PRODUCT USED FOR UNKNOWN INDICATION
     Route: 065
  7. MABTHERA [Concomitant]
     Indication: LYMPHOMA
     Route: 042
  8. INEXIUM [Concomitant]
     Route: 065
  9. ORACILLINE [Concomitant]
     Route: 065
  10. BACTRIM FORTE [Concomitant]
     Route: 065
  11. KEPPRA [Concomitant]
     Route: 065
  12. SOLUMEDROL [Concomitant]
     Route: 065
  13. PLITICAN [Concomitant]
     Route: 065

REACTIONS (4)
  - Depressed level of consciousness [Recovered/Resolved]
  - Neurotoxicity [Recovered/Resolved]
  - Perseveration [Recovered/Resolved]
  - Somnolence [Recovered/Resolved]
